FAERS Safety Report 9199102 (Version 1)
Quarter: 2013Q1

REPORT INFORMATION
  Report Type: Spontaneous
  Country: IT (occurrence: None)
  Receive Date: 20130326
  Receipt Date: 20130326
  Transmission Date: 20140127
  Serious: Yes (Hospitalization)
  Sender: FDA-Public Use
  Company Number: 2013-05068

PATIENT
  Age: 41 Year
  Sex: Female

DRUGS (4)
  1. PARACETAMOL (UNKNOWN) (PARACETAMOL) UNK, UNKUNK [Suspect]
     Indication: OROPHARYNGEAL PAIN
     Route: 048
     Dates: start: 20130220
  2. AUGMENTIN [Suspect]
     Indication: OROPHARYNGEAL PAIN
     Route: 048
     Dates: start: 20130220, end: 20130224
  3. HEDERIX PLAN (CODEINE HYDROBROMIDE, HEDERA HELIX) [Concomitant]
  4. OTALGAN  /00040501/ (GLYCEROL, PHENAZONE,PROCAINE) [Concomitant]

REACTIONS (1)
  - Generalised erythema [None]
